FAERS Safety Report 14388048 (Version 3)
Quarter: 2019Q1

REPORT INFORMATION
  Report Type: Spontaneous
  Country: US (occurrence: US)
  Receive Date: 20180115
  Receipt Date: 20190308
  Transmission Date: 20190417
  Serious: Yes (Other)
  Sender: FDA-Public Use
  Company Number: US-SA-2017SA207429

PATIENT
  Age: 65 Year
  Sex: Female
  Weight: 95.69 kg

DRUGS (7)
  1. HERCEPTIN [Concomitant]
     Active Substance: TRASTUZUMAB
  2. PARAPLATIN [Concomitant]
     Active Substance: CARBOPLATIN
     Dosage: UNK
     Route: 065
  3. DOCETAXEL. [Suspect]
     Active Substance: DOCETAXEL
     Dosage: 158 MG FOR FIRST 3 TREATMENTS, 138 MG FOR 4TH, 137 MG FOR 5TH + 6TH
     Route: 042
     Dates: start: 20121113, end: 20121113
  4. SYNTHROID [Concomitant]
     Active Substance: LEVOTHYROXINE SODIUM
  5. AMLODIPINE [Concomitant]
     Active Substance: AMLODIPINE BESYLATE
     Dosage: UNK
     Route: 065
  6. DOCETAXEL. [Suspect]
     Active Substance: DOCETAXEL
     Indication: BREAST CANCER
     Dosage: 158 MG FOR FIRST 3 TREATMENTS, 138 MG FOR 4TH, 137 MG FOR 5TH + 6TH
     Route: 042
     Dates: start: 20120731, end: 20120731
  7. METOPROLOL. [Concomitant]
     Active Substance: METOPROLOL
     Dosage: UNK
     Route: 065

REACTIONS (5)
  - Impaired quality of life [Unknown]
  - Alopecia [Recovering/Resolving]
  - Emotional distress [Unknown]
  - Pain [Unknown]
  - Anxiety [Unknown]

NARRATIVE: CASE EVENT DATE: 201305
